FAERS Safety Report 24423232 (Version 1)
Quarter: 2024Q4

REPORT INFORMATION
  Report Type: Spontaneous
  Country: BR (occurrence: BR)
  Receive Date: 20241010
  Receipt Date: 20241010
  Transmission Date: 20250114
  Serious: Yes (Other)
  Sender: BAYER
  Company Number: BR-BAYER-2024A143751

PATIENT
  Age: 59 Year
  Sex: Male

DRUGS (4)
  1. STIVARGA [Suspect]
     Active Substance: REGORAFENIB MONOHYDRATE
     Indication: Hepatic cancer
     Dosage: 160 MG, QD
     Dates: start: 20240301, end: 20240904
  2. STIVARGA [Suspect]
     Active Substance: REGORAFENIB MONOHYDRATE
     Indication: Gastric cancer
  3. GLIMATIN [Concomitant]
     Indication: Hepatic cancer
     Dosage: BOX WITH 30 TABLETS
  4. GLIMATIN [Concomitant]
     Indication: Gastric cancer

REACTIONS (2)
  - Hepatic cancer [Unknown]
  - Gastric cancer [Unknown]
